FAERS Safety Report 4412120-6 (Version None)
Quarter: 2004Q3

REPORT INFORMATION
  Report Type: 
  Country: None (occurrence: None)
  Receive Date: 20040730
  Receipt Date: 20040721
  Transmission Date: 20050211
  Serious: Yes (Other)
  Sender: FDA-Public Use
  Company Number: IE-GLAXOSMITHKLINE-B0340502A

PATIENT
  Age: 4 Week
  Sex: Female

DRUGS (1)
  1. ZOVIRAX [Suspect]
     Indication: RASH
     Dates: start: 20040719

REACTIONS (3)
  - FEELING ABNORMAL [None]
  - GAIT DISTURBANCE [None]
  - PARALYSIS [None]
